FAERS Safety Report 6950857-5 (Version None)
Quarter: 2010Q3

REPORT INFORMATION
  Report Type: 
  Country: None (occurrence: None)
  Receive Date: 20100828
  Receipt Date: 20100226
  Transmission Date: 20110219
  Serious: No
  Sender: FDA-Public Use
  Company Number: US-ABBOTT-10P-163-0629778-00

PATIENT
  Sex: Female
  Weight: 74.91 kg

DRUGS (2)
  1. NIASPAN [Suspect]
     Indication: DYSLIPIDAEMIA
     Route: 048
  2. NIASPAN [Suspect]
     Route: 048
     Dates: end: 20091111

REACTIONS (1)
  - DRUG INEFFECTIVE [None]
